FAERS Safety Report 20391892 (Version 1)
Quarter: 2022Q1

REPORT INFORMATION
  Report Type: Spontaneous
  Country: US (occurrence: None)
  Receive Date: 20220128
  Receipt Date: 20220128
  Transmission Date: 20220424
  Serious: Yes (Hospitalization)
  Sender: FDA-Public Use
  Company Number: None

PATIENT
  Sex: Female

DRUGS (1)
  1. IBRANCE [Suspect]
     Active Substance: PALBOCICLIB
     Indication: Breast cancer
     Dosage: FREQUENCY : AS DIRECTED;?
     Route: 048
     Dates: start: 20211217

REACTIONS (4)
  - Cerebral haemorrhage [None]
  - Metastases to central nervous system [None]
  - Metastases to liver [None]
  - Metastases to lung [None]
